FAERS Safety Report 26212199 (Version 1)
Quarter: 2025Q4

REPORT INFORMATION
  Report Type: Report from Study
  Country: US (occurrence: US)
  Receive Date: 20251230
  Receipt Date: 20251230
  Transmission Date: 20260118
  Serious: Yes (Other)
  Sender: ACADIA PHARMACEUTICALS
  Company Number: US-ACADIA PHARMACEUTICALS INC.-ACA-2025-PIM-013619

PATIENT
  Sex: Female

DRUGS (6)
  1. NUPLAZID [Suspect]
     Active Substance: PIMAVANSERIN TARTRATE
     Indication: Parkinson^s disease
     Dosage: 34 MILLIGRAM, QD
     Route: 048
  2. VITAMIN D3 [Concomitant]
     Active Substance: CHOLECALCIFEROL
  3. SIMVASTATIN [Concomitant]
     Active Substance: SIMVASTATIN
  4. VESICARE [Concomitant]
     Active Substance: SOLIFENACIN SUCCINATE
  5. MELATONIN [Concomitant]
     Active Substance: MELATONIN
  6. RYTARY [Concomitant]
     Active Substance: CARBIDOPA\LEVODOPA

REACTIONS (6)
  - Hallucination, visual [Unknown]
  - Poor quality sleep [Unknown]
  - Stress [Unknown]
  - Fear [Unknown]
  - Nightmare [Unknown]
  - Product use issue [Unknown]
